FAERS Safety Report 12859333 (Version 1)
Quarter: 2016Q4

REPORT INFORMATION
  Report Type: Spontaneous
  Country: US (occurrence: US)
  Receive Date: 20161018
  Receipt Date: 20161018
  Transmission Date: 20170207
  Serious: No
  Sender: FDA-Public Use
  Company Number: US-ALLERGAN-1000086133

PATIENT
  Age: 84 Year
  Sex: Female

DRUGS (5)
  1. NAMZARIC [Suspect]
     Active Substance: DONEPEZIL HYDROCHLORIDE\MEMANTINE HYDROCHLORIDE
     Indication: DEMENTIA ALZHEIMER^S TYPE
     Dosage: UNK UNK, QD
     Route: 048
     Dates: start: 20160702, end: 201607
  2. VITAMIN D [Concomitant]
     Active Substance: CHOLECALCIFEROL
     Dosage: UNK
  3. MULTIVITAMINS [Concomitant]
     Active Substance: VITAMINS
     Dosage: UNK
  4. FLUOXETINE [Concomitant]
     Active Substance: FLUOXETINE HYDROCHLORIDE
     Dosage: UNK
  5. ATORVASTATIN [Concomitant]
     Active Substance: ATORVASTATIN
     Dosage: 20 MG, UNK

REACTIONS (3)
  - Dizziness [Recovered/Resolved]
  - Fall [Recovered/Resolved]
  - Contusion [Recovered/Resolved]

NARRATIVE: CASE EVENT DATE: 201607
